FAERS Safety Report 5581712-3 (Version None)
Quarter: 2008Q1

REPORT INFORMATION
  Report Type: 
  Country: None (occurrence: None)
  Receive Date: 20080104
  Receipt Date: 20071221
  Transmission Date: 20080703
  Serious: Yes (Other)
  Sender: FDA-Public Use
  Company Number: PT-JNJFOC-20070804144

PATIENT
  Sex: Female
  Weight: 40 kg

DRUGS (12)
  1. GALANTAMINE HYDROBROMIDE [Suspect]
     Indication: DEMENTIA ALZHEIMER'S TYPE
     Route: 048
  2. RANITIDINE HYDROCHLORIDE [Concomitant]
     Indication: HYPERCHLORHYDRIA
     Route: 048
  3. TRIMETAZIDINE DIHYDROCHLORIDE [Concomitant]
     Route: 048
  4. THIAMINE HCL [Concomitant]
     Indication: ANOREXIA
     Route: 048
  5. RIBOFLAVIN TAB [Concomitant]
     Indication: ANOREXIA
     Route: 048
  6. NICOTINAMIDE [Concomitant]
     Indication: ANOREXIA
     Route: 048
  7. PYNDOXINE HYDROCHLORIDE [Concomitant]
     Indication: ANOREXIA
     Route: 048
  8. CALCIUM PANTOTHENATE [Concomitant]
     Indication: ANOREXIA
     Route: 048
  9. CYANOCOBALAMIN [Concomitant]
     Indication: ANOREXIA
     Route: 048
  10. BIOLIN [Concomitant]
     Indication: ANOREXIA
     Route: 048
  11. MEXAZOLAM [Concomitant]
     Indication: ANXIETY
     Route: 048
  12. DONEPEZIL HCL [Concomitant]
     Indication: DEMENTIA ALZHEIMER'S TYPE
     Route: 048

REACTIONS (4)
  - CHEST DISCOMFORT [None]
  - DYSPNOEA [None]
  - HEAD DISCOMFORT [None]
  - VISION BLURRED [None]
